FAERS Safety Report 26031779 (Version 1)
Quarter: 2025Q4

REPORT INFORMATION
  Report Type: Spontaneous
  Country: US (occurrence: US)
  Receive Date: 20251112
  Receipt Date: 20251112
  Transmission Date: 20260117
  Serious: Yes (Hospitalization, Other)
  Sender: SANOFI AVENTIS
  Company Number: US-SANOFI-02711684

PATIENT
  Age: 56 Year
  Sex: Male
  Weight: 79.7 kg

DRUGS (11)
  1. DUPIXENT [Suspect]
     Active Substance: DUPILUMAB
     Dosage: UNK
     Route: 065
  2. OLOPATADINE HYDROCHLORIDE [Suspect]
     Active Substance: OLOPATADINE HYDROCHLORIDE
     Dosage: UNK
     Route: 045
  3. TADALAFIL [Suspect]
     Active Substance: TADALAFIL
     Indication: pH body fluid
     Dosage: 2 DF
  4. AMBRISENTAN [Suspect]
     Active Substance: AMBRISENTAN
     Indication: pH body fluid
     Dosage: 1 DF
     Route: 048
  5. FAMOTIDINE [Suspect]
     Active Substance: FAMOTIDINE
     Indication: Gastritis
     Dosage: 20 MG
     Route: 042
     Dates: start: 20250320
  6. PANTOPRAZOLE SODIUM [Suspect]
     Active Substance: PANTOPRAZOLE SODIUM
     Indication: Gastritis
     Dosage: 40 MG
     Route: 042
     Dates: start: 20250320
  7. XHANCE [Suspect]
     Active Substance: FLUTICASONE PROPIONATE
     Route: 045
  8. CIPRO [Suspect]
     Active Substance: CIPROFLOXACIN HYDROCHLORIDE
     Indication: Gastritis
     Dosage: 500 MG, BID
     Route: 048
     Dates: start: 20251103
  9. SERALUTINIB [Concomitant]
     Active Substance: SERALUTINIB
  10. IRON [Concomitant]
     Active Substance: IRON
  11. TRELEGY ELLIPTA [Concomitant]
     Active Substance: FLUTICASONE FUROATE\UMECLIDINIUM BROMIDE\VILANTEROL TRIFENATATE

REACTIONS (23)
  - Dyspepsia [Unknown]
  - Cardiac failure [Unknown]
  - Pneumonia aspiration [Unknown]
  - Corynebacterium sepsis [Unknown]
  - Hypoxia [Unknown]
  - Anaphylactic reaction [Unknown]
  - Tachypnoea [Unknown]
  - Abdominal pain lower [Unknown]
  - Tachycardia [Unknown]
  - Hypotension [Unknown]
  - Hyperhidrosis [Unknown]
  - Chills [Unknown]
  - Epigastric discomfort [Unknown]
  - Nausea [Unknown]
  - Right ventricular systolic pressure decreased [Unknown]
  - Gastrointestinal wall thickening [Unknown]
  - Mitral valve disease [Unknown]
  - Right atrial enlargement [Unknown]
  - Neoplasm [Unknown]
  - Polyp [Unknown]
  - Erythema [Unknown]
  - Gastritis [Unknown]
  - Nasopharyngitis [Recovered/Resolved]

NARRATIVE: CASE EVENT DATE: 20250101
